FAERS Safety Report 6411223-4 (Version None)
Quarter: 2009Q4

REPORT INFORMATION
  Report Type: 
  Country: None (occurrence: None)
  Receive Date: 20091020
  Receipt Date: 20091006
  Transmission Date: 20100525
  Serious: Yes (Life-Threatening, Hospitalization)
  Sender: FDA-Public Use
  Company Number: 006980

PATIENT
  Age: 64 Year
  Sex: Female
  Weight: 60 kg

DRUGS (1)
  1. PLETAL [Suspect]
     Dosage: 100 MG, ORAL
     Route: 048
     Dates: start: 20090616, end: 20090618

REACTIONS (2)
  - HYPERSENSITIVITY [None]
  - TACHYCARDIA [None]
